FAERS Safety Report 4691516-1 (Version None)
Quarter: 2005Q2

REPORT INFORMATION
  Report Type: 
  Country: None (occurrence: None)
  Receive Date: 20050608
  Receipt Date: 20040804
  Transmission Date: 20051028
  Serious: Yes (Hospitalization)
  Sender: FDA-Public Use
  Company Number: 376856

PATIENT
  Age: 29 Year
  Sex: Male
  Weight: 79.4 kg

DRUGS (7)
  1. ACCUTANE [Suspect]
     Indication: ACNE
     Dosage: ORAL
     Route: 048
     Dates: start: 19930815, end: 19931115
  2. PREDNISONE [Concomitant]
  3. ASACOL [Concomitant]
  4. ACCOLATE [Concomitant]
  5. IMURAN [Concomitant]
  6. ROWASA [Concomitant]
  7. ZANTAC [Concomitant]

REACTIONS (9)
  - ABDOMINAL PAIN [None]
  - COLITIS [None]
  - COLITIS ULCERATIVE [None]
  - DIARRHOEA HAEMORRHAGIC [None]
  - FREQUENT BOWEL MOVEMENTS [None]
  - GASTROINTESTINAL DISORDER [None]
  - HAEMATOCHEZIA [None]
  - LYMPHADENOPATHY [None]
  - SWELLING [None]
